FAERS Safety Report 6564991-5 (Version None)
Quarter: 2010Q1

REPORT INFORMATION
  Report Type: 
  Country: None (occurrence: None)
  Receive Date: 20100201
  Receipt Date: 20100120
  Transmission Date: 20100710
  Serious: Yes (Other)
  Sender: FDA-Public Use
  Company Number: JP-PFIZER INC-2010009558

PATIENT
  Age: 60 Year
  Sex: Female

DRUGS (6)
  1. ALDACTONE [Suspect]
     Dosage: 25 MG, DAILY
     Dates: start: 20091218
  2. LASIX [Suspect]
     Dosage: 40 MG, DAILY
     Route: 048
  3. KLARICID [Suspect]
     Dosage: 200 MG, 2X/DAY
     Route: 048
     Dates: start: 20091221, end: 20091201
  4. OLMETEC [Concomitant]
     Dosage: 10 MG, DAILY
     Route: 048
     Dates: start: 20091218
  5. ARTIST [Concomitant]
     Dosage: 50 MG, DAILY
     Route: 048
  6. URSO 250 [Concomitant]
     Dosage: 3 DF, DAILY
     Route: 048

REACTIONS (1)
  - ELECTROCARDIOGRAM QT PROLONGED [None]
